FAERS Safety Report 24165077 (Version 2)
Quarter: 2024Q3

REPORT INFORMATION
  Report Type: Spontaneous
  Country: US (occurrence: US)
  Receive Date: 20240802
  Receipt Date: 20240905
  Transmission Date: 20241017
  Serious: Yes (Other)
  Sender: JOHNSON AND JOHNSON
  Company Number: US-JNJFOC-20240773007

PATIENT
  Sex: Male

DRUGS (2)
  1. XARELTO [Suspect]
     Active Substance: RIVAROXABAN
     Indication: Thrombosis
     Route: 048
     Dates: end: 202110
  2. XARELTO [Suspect]
     Active Substance: RIVAROXABAN
     Route: 048

REACTIONS (9)
  - Disability [Unknown]
  - Deafness unilateral [Unknown]
  - Hypertension [Unknown]
  - Musculoskeletal disorder [Unknown]
  - Hypertonic bladder [Unknown]
  - Nodule [Unknown]
  - Back pain [Unknown]
  - Gait inability [Unknown]
  - Pain [Unknown]
